FAERS Safety Report 5684139-9 (Version None)
Quarter: 2008Q1

REPORT INFORMATION
  Report Type: 
  Country: None (occurrence: None)
  Receive Date: 20080328
  Receipt Date: 20070604
  Transmission Date: 20080703
  Serious: No
  Sender: FDA-Public Use
  Company Number: US-AMGEN-KDL227510

PATIENT
  Sex: Female
  Weight: 94.4 kg

DRUGS (5)
  1. NEULASTA [Suspect]
     Indication: CHEMOTHERAPY
     Route: 058
     Dates: start: 20070525
  2. COUMADIN [Concomitant]
  3. TRAZODONE HCL [Concomitant]
  4. NEXIUM [Concomitant]
  5. OXYCODONE HCL [Concomitant]

REACTIONS (1)
  - INJECTION SITE RASH [None]
